FAERS Safety Report 13840611 (Version 1)
Quarter: 2017Q3

REPORT INFORMATION
  Report Type: Report from Study
  Country: US (occurrence: US)
  Receive Date: 20170807
  Receipt Date: 20170807
  Transmission Date: 20171127
  Serious: Yes (Hospitalization)
  Sender: FDA-Public Use
  Company Number: US-VIFOR (INTERNATIONAL) INC.-VIT-2017-08133

PATIENT
  Age: 46 Year
  Sex: Male

DRUGS (1)
  1. VELTASSA [Suspect]
     Active Substance: PATIROMER
     Indication: PRODUCT USED FOR UNKNOWN INDICATION
     Dates: start: 20170519

REACTIONS (4)
  - Skin discolouration [Recovering/Resolving]
  - Pain in extremity [Unknown]
  - Vein disorder [Unknown]
  - Localised infection [Unknown]

NARRATIVE: CASE EVENT DATE: 2017
